FAERS Safety Report 5572128-4 (Version None)
Quarter: 2007Q4

REPORT INFORMATION
  Report Type: 
  Country: None (occurrence: None)
  Receive Date: 20071221
  Receipt Date: 20071214
  Transmission Date: 20080405
  Serious: Yes (Other)
  Sender: FDA-Public Use
  Company Number: SE-PFIZER INC-2007105257

PATIENT
  Age: 20 Year
  Sex: Female

DRUGS (3)
  1. CYTOTEC [Suspect]
     Indication: ABORTION
     Dosage: DAILY DOSE:.8MG
     Route: 067
     Dates: start: 20070203, end: 20070203
  2. VOLTAREN [Suspect]
     Indication: ABORTION
     Dosage: DAILY DOSE:100MG
     Route: 048
     Dates: start: 20070203, end: 20070203
  3. ALVEDON [Concomitant]

REACTIONS (2)
  - ANGIOEDEMA [None]
  - OFF LABEL USE [None]
